FAERS Safety Report 22608669 (Version 1)
Quarter: 2023Q2

REPORT INFORMATION
  Report Type: Spontaneous
  Country: CN (occurrence: CN)
  Receive Date: 20230616
  Receipt Date: 20230616
  Transmission Date: 20230721
  Serious: Yes (Other)
  Sender: FDA-Public Use
  Company Number: None

PATIENT
  Age: 47 Year
  Sex: Female
  Weight: 65 kg

DRUGS (8)
  1. CYCLOPHOSPHAMIDE [Suspect]
     Active Substance: CYCLOPHOSPHAMIDE
     Indication: Breast cancer
     Dosage: 0.96 G, QD (DILUTED WITH 0.9% SODIUM CHLORIDE INJECTION 500 ML)
     Route: 041
     Dates: start: 20230513, end: 20230513
  2. CYCLOPHOSPHAMIDE [Suspect]
     Active Substance: CYCLOPHOSPHAMIDE
     Indication: Chemotherapy
  3. CYCLOPHOSPHAMIDE [Suspect]
     Active Substance: CYCLOPHOSPHAMIDE
     Indication: Drug therapy
  4. SODIUM CHLORIDE [Suspect]
     Active Substance: SODIUM CHLORIDE
     Indication: Medication dilution
     Dosage: 500 ML, QD, STRENGTH: 0.9%, DOSAGE FORM: INJECTION (USED TO DILUTE CYCLOPHOSPHAMIDE 0.96G)
     Route: 041
     Dates: start: 20230513, end: 20230513
  5. SODIUM CHLORIDE [Suspect]
     Active Substance: SODIUM CHLORIDE
     Dosage: 100 ML, QD, STRENGTH: 0.9%, DOSAGE FORM: INJECTION (USED TO DILUTE EPIRUBICIN HYDROCHLORIDE 160 MG)
     Route: 041
     Dates: start: 20230513, end: 20230513
  6. EPIRUBICIN [Suspect]
     Active Substance: EPIRUBICIN
     Indication: Breast cancer
     Dosage: 160 MG, QD (DILUTED WITH 0.9% SODIUM CHLORIDE INJECTION 100 ML)
     Route: 041
     Dates: start: 20230513, end: 20230513
  7. EPIRUBICIN [Suspect]
     Active Substance: EPIRUBICIN
     Indication: Chemotherapy
  8. EPIRUBICIN [Suspect]
     Active Substance: EPIRUBICIN
     Indication: Symptomatic treatment

REACTIONS (1)
  - Myelosuppression [Unknown]

NARRATIVE: CASE EVENT DATE: 20230516
